FAERS Safety Report 6117024-9 (Version None)
Quarter: 2009Q1

REPORT INFORMATION
  Report Type: 
  Country: None (occurrence: None)
  Receive Date: 20090314
  Receipt Date: 20090105
  Transmission Date: 20090719
  Serious: No
  Sender: FDA-Public Use
  Company Number: US-ABBOTT-09P-163-0495969-00

PATIENT
  Sex: Female
  Weight: 77.18 kg

DRUGS (3)
  1. HUMIRA [Suspect]
     Indication: PSORIASIS
     Route: 058
     Dates: start: 20080201
  2. ASPIRIN [Concomitant]
     Indication: HEADACHE
     Route: 048
  3. BC HEADACHE [Concomitant]
     Indication: HEADACHE

REACTIONS (3)
  - PSORIASIS [None]
  - RASH MACULAR [None]
  - SKIN EXFOLIATION [None]
